FAERS Safety Report 6424424-6 (Version None)
Quarter: 2009Q4

REPORT INFORMATION
  Report Type: 
  Country: None (occurrence: None)
  Receive Date: 20091029
  Receipt Date: 20091019
  Transmission Date: 20100525
  Serious: Yes (Hospitalization)
  Sender: FDA-Public Use
  Company Number: 413902

PATIENT
  Age: 11 Year
  Sex: Male
  Weight: 8 kg

DRUGS (9)
  1. VINCRISTINE [Suspect]
     Indication: LYMPHOCYTIC LEUKAEMIA
     Dosage: 400 MCG, 1 WEEK, INTRAVENOUS
     Route: 042
     Dates: start: 20080731, end: 20080821
  2. (LANVIS) [Suspect]
     Indication: LYMPHOCYTIC LEUKAEMIA
     Dosage: 20 MG, ORAL
     Route: 048
     Dates: start: 20080731, end: 20080828
  3. CERUBIDINE [Suspect]
     Indication: LYMPHOCYTIC LEUKAEMIA
     Dosage: 8500 MCG, 1 WEEK
     Dates: start: 20080731, end: 20080821
  4. (ENDOXAN /00021101/) [Suspect]
     Indication: LYMPHOCYTIC LEUKAEMIA
     Dosage: 140 MCG, INTRAVENOUS
     Route: 042
     Dates: start: 20080904, end: 20080914
  5. CYTARABINE [Suspect]
     Indication: LYMPHOCYTIC LEUKAEMIA
     Dosage: SEE IMAGE
     Route: 042
     Dates: start: 20080731, end: 20080731
  6. CYTARABINE [Suspect]
     Indication: LYMPHOCYTIC LEUKAEMIA
     Dosage: SEE IMAGE
     Route: 042
     Dates: start: 20080801, end: 20080825
  7. (KIDROLASE) [Suspect]
     Dosage: 678 IU INTRAVENOUS
     Route: 042
     Dates: start: 20080731, end: 20080731
  8. METHYLPREDNISOLONE 4MG TAB [Concomitant]
  9. DEXAMETHASONE [Concomitant]

REACTIONS (1)
  - APLASIA [None]
